FAERS Safety Report 4323061-7 (Version None)
Quarter: 2004Q1

REPORT INFORMATION
  Report Type: 
  Country: None (occurrence: None)
  Receive Date: 20040325
  Receipt Date: 20040318
  Transmission Date: 20041129
  Serious: Yes (Other)
  Sender: FDA-Public Use
  Company Number: 200411150FR

PATIENT
  Age: 54 Year
  Sex: Female

DRUGS (9)
  1. AMAREL [Suspect]
     Indication: DIABETES MELLITUS NON-INSULIN-DEPENDENT
     Route: 048
     Dates: end: 20040301
  2. TAHOR [Concomitant]
     Route: 048
     Dates: end: 20040301
  3. KARDEGIC [Concomitant]
     Route: 048
     Dates: end: 20040301
  4. CLIMASTON [Concomitant]
     Route: 048
     Dates: end: 20040301
  5. CELEBREX [Concomitant]
     Route: 048
     Dates: end: 20040301
  6. ALDACTONE [Concomitant]
     Route: 048
  7. TAREG [Concomitant]
     Route: 048
  8. DEROXAT [Concomitant]
     Route: 048
  9. LEXOMIL [Concomitant]
     Route: 048

REACTIONS (2)
  - ANAEMIA MACROCYTIC [None]
  - ERYTHROID MATURATION ARREST [None]
